FAERS Safety Report 25818197 (Version 3)
Quarter: 2025Q4

REPORT INFORMATION
  Report Type: Spontaneous
  Country: US (occurrence: US)
  Receive Date: 20250918
  Receipt Date: 20251106
  Transmission Date: 20260118
  Serious: Yes (Death, Hospitalization)
  Sender: UNITED THERAPEUTICS
  Company Number: US-UNITED THERAPEUTICS-UNT-2025-031801

PATIENT
  Age: 86 Year
  Sex: Female
  Weight: 71.202 kg

DRUGS (11)
  1. TYVASO [Suspect]
     Active Substance: TREPROSTINIL
     Indication: Pulmonary hypertension
     Dosage: 42 ?G, QID
  2. TYVASO [Suspect]
     Active Substance: TREPROSTINIL
     Indication: Interstitial lung disease
     Dosage: UNK
  3. TYVASO DPI [Suspect]
     Active Substance: TREPROSTINIL
     Indication: Pulmonary hypertension
     Dosage: 16 ?G, QID
     Dates: start: 20250912
  4. TYVASO DPI [Suspect]
     Active Substance: TREPROSTINIL
     Indication: Interstitial lung disease
  5. TYVASO DPI [Suspect]
     Active Substance: TREPROSTINIL
     Indication: Pulmonary hypertension
     Dosage: UNK
  6. TYVASO DPI [Suspect]
     Active Substance: TREPROSTINIL
     Indication: Interstitial lung disease
  7. AMLODIPINE BESYLATE [Concomitant]
     Active Substance: AMLODIPINE BESYLATE
     Indication: Product used for unknown indication
     Dosage: UNK
  8. TADALAFIL [Concomitant]
     Active Substance: TADALAFIL
     Indication: Product used for unknown indication
     Dosage: UNK
  9. CYTOMEL [Concomitant]
     Active Substance: LIOTHYRONINE SODIUM
     Indication: Product used for unknown indication
     Dosage: UNK
  10. SYNTHROID [Concomitant]
     Active Substance: LEVOTHYROXINE SODIUM
     Indication: Product used for unknown indication
     Dosage: UNK
  11. OXYGEN [Concomitant]
     Active Substance: OXYGEN
     Indication: Product used for unknown indication
     Dosage: UNK

REACTIONS (3)
  - Chronic obstructive pulmonary disease [Fatal]
  - Headache [Unknown]
  - Dizziness [Unknown]

NARRATIVE: CASE EVENT DATE: 20250901
